FAERS Safety Report 19271009 (Version 1)
Quarter: 2021Q2

REPORT INFORMATION
  Report Type: Spontaneous
  Country: CN (occurrence: CN)
  Receive Date: 20210518
  Receipt Date: 20210518
  Transmission Date: 20210717
  Serious: Yes (Hospitalization)
  Sender: FDA-Public Use
  Company Number: CN-ASTRAZENECA-2021A407766

PATIENT
  Age: 42 Year
  Sex: Female
  Weight: 70 kg

DRUGS (3)
  1. IMFINZI [Suspect]
     Active Substance: DURVALUMAB
     Indication: NON-SMALL CELL LUNG CANCER STAGE III
     Dosage: 1000 MG / PERIOD
     Route: 042
     Dates: start: 20200628, end: 20200703
  2. CHEMOTHERAPEUTIC DRUG [Concomitant]
  3. CATEQUENTINIB. [Concomitant]
     Active Substance: CATEQUENTINIB
     Indication: ANTIANGIOGENIC THERAPY
     Dosage: 12MG EVERY DAY, USING FOR TWO WEEKS AND STOPPING FOR ONE WEEK
     Route: 048

REACTIONS (2)
  - Skin reaction [Recovered/Resolved]
  - Herpes zoster [Recovering/Resolving]

NARRATIVE: CASE EVENT DATE: 2021
